FAERS Safety Report 9236527 (Version 3)
Quarter: 2013Q3

REPORT INFORMATION
  Report Type: Spontaneous
  Country: US (occurrence: US)
  Receive Date: 20130417
  Receipt Date: 20130729
  Transmission Date: 20140515
  Serious: No
  Sender: FDA-Public Use
  Company Number: US-B.I. PHARMACEUTICALS,INC./RIDGEFIELD-2013-BI-09208BP

PATIENT
  Age: 91 Year
  Sex: Male

DRUGS (4)
  1. SPIRIVA [Suspect]
     Indication: CHRONIC OBSTRUCTIVE PULMONARY DISEASE
     Dosage: 18 MCG
     Route: 055
     Dates: start: 20110125, end: 20130328
  2. SPIRIVA [Suspect]
     Route: 055
  3. NORVAS [Concomitant]
     Indication: HYPERTENSION
     Dosage: 5 MG
     Dates: start: 2002
  4. FLOMAX [Concomitant]
     Indication: BENIGN PROSTATIC HYPERPLASIA
     Dosage: 0.4 MG
     Dates: start: 2002

REACTIONS (2)
  - Ageusia [Unknown]
  - Product quality issue [Recovered/Resolved]
